FAERS Safety Report 4994840-8 (Version None)
Quarter: 2006Q2

REPORT INFORMATION
  Report Type: 
  Country: None (occurrence: None)
  Receive Date: 20060508
  Receipt Date: 20060420
  Transmission Date: 20061013
  Serious: Yes (Life-Threatening)
  Sender: FDA-Public Use
  Company Number: US-BOEHRINGER INGELHEIM PHARMACEUTICALS, INC.-2006-BP-04475BP

PATIENT
  Age: 82 Year
  Sex: Female
  Weight: 99.79 kg

DRUGS (7)
  1. MIRAPEX [Suspect]
     Indication: PARKINSON'S DISEASE
     Route: 048
     Dates: start: 20050715
  2. MIRAPEX [Suspect]
     Route: 048
     Dates: start: 20050901, end: 20060301
  3. MIRAPEX [Suspect]
     Route: 048
     Dates: start: 20060301, end: 20060301
  4. PROZAC [Concomitant]
  5. DITROPAN [Concomitant]
  6. 7IAC [Concomitant]
  7. HYZAAR [Concomitant]

REACTIONS (3)
  - ROAD TRAFFIC ACCIDENT [None]
  - SLEEP ATTACKS [None]
  - SYNCOPE [None]
